FAERS Safety Report 7605672-6 (Version None)
Quarter: 2011Q3

REPORT INFORMATION
  Report Type: 
  Country: None (occurrence: None)
  Receive Date: 20110713
  Receipt Date: 20110704
  Transmission Date: 20111222
  Serious: Yes (Other)
  Sender: FDA-Public Use
  Company Number: CH-BRISTOL-MYERS SQUIBB COMPANY-15647209

PATIENT
  Age: 85 Year
  Sex: Male
  Weight: 76 kg

DRUGS (4)
  1. ALFUZOSIN HCL [Concomitant]
     Indication: BENIGN PROSTATIC HYPERPLASIA
     Route: 048
     Dates: start: 20000101
  2. MESALAMINE [Concomitant]
     Indication: PROCTOCOLITIS
     Route: 054
     Dates: start: 20101106
  3. IRBESARTAN + HYDROCHLOROTHIAZIDE [Suspect]
     Indication: ESSENTIAL HYPERTENSION
     Dosage: 300/12.5
     Route: 048
     Dates: start: 20000101
  4. PENTASA [Suspect]
     Indication: PROCTOCOLITIS
     Route: 048
     Dates: start: 20101106, end: 20110125

REACTIONS (2)
  - PROCTOCOLITIS [None]
  - HYPERTENSION [None]
